FAERS Safety Report 4644536-7 (Version None)
Quarter: 2005Q2

REPORT INFORMATION
  Report Type: 
  Country: None (occurrence: None)
  Receive Date: 20050426
  Receipt Date: 20041116
  Transmission Date: 20051028
  Serious: Yes (Hospitalization)
  Sender: FDA-Public Use
  Company Number: FR-ABBOTT-04P-056-0280947-00

PATIENT
  Age: 40 Year
  Sex: Male
  Weight: 55 kg

DRUGS (12)
  1. NORVIR [Suspect]
     Indication: HIV INFECTION
     Route: 048
     Dates: start: 20040131, end: 20040216
  2. RISPERIDONE [Suspect]
     Indication: DYSTHYMIC DISORDER
     Route: 048
     Dates: end: 20040211
  3. ZIDOVUDINE [Suspect]
     Indication: HIV INFECTION
     Route: 048
     Dates: start: 20040131, end: 20040216
  4. BACTRIM [Suspect]
     Indication: DRUG USE FOR UNKNOWN INDICATION
     Route: 048
  5. BUPRENORPHINE HCL [Suspect]
     Indication: DRUG DEPENDENCE
     Route: 060
  6. INDINAVIR SULFATE [Suspect]
     Indication: HIV INFECTION
     Route: 048
     Dates: start: 20040131, end: 20040216
  7. FLUCONAZOLE [Concomitant]
     Indication: CANDIDIASIS
     Route: 048
  8. OLANZAPINE [Concomitant]
     Indication: DEPRESSION
     Route: 048
     Dates: start: 20040211
  9. NEUPOGEN [Concomitant]
     Indication: DRUG USE FOR UNKNOWN INDICATION
     Dates: start: 20040210, end: 20040215
  10. KALETRA [Concomitant]
     Indication: HIV INFECTION
     Route: 048
     Dates: start: 20040216
  11. LAMIVUDINE [Concomitant]
     Indication: HIV INFECTION
     Route: 048
     Dates: start: 20040216
  12. DIDANOSINE [Concomitant]
     Indication: HIV INFECTION
     Route: 048
     Dates: start: 20040216

REACTIONS (1)
  - PANCYTOPENIA [None]
